FAERS Safety Report 7297549-3 (Version None)
Quarter: 2011Q1

REPORT INFORMATION
  Report Type: 
  Country: None (occurrence: None)
  Receive Date: 20110216
  Receipt Date: 20110210
  Transmission Date: 20110831
  Serious: Yes (Other)
  Sender: FDA-Public Use
  Company Number: CA-PFIZER INC-2010178314

PATIENT
  Age: 66 Year
  Sex: Male
  Weight: 104.31 kg

DRUGS (5)
  1. NEXIUM [Concomitant]
     Indication: HYPERCHLORHYDRIA
     Dosage: 40 MG, DAILY
     Dates: start: 20010101
  2. CRESTOR [Concomitant]
     Indication: DYSLIPIDAEMIA
     Dosage: 10 MG, UNK
     Dates: start: 20050101
  3. CELEBREX [Suspect]
     Indication: OSTEOARTHRITIS
     Dosage: 200 MG, AS NEEDED
     Route: 048
  4. ATACAND HCT [Concomitant]
     Dosage: UNK
     Dates: start: 20050101
  5. CARVEDILOL [Concomitant]
     Indication: MYOCARDITIS POST INFECTION
     Dosage: 12.5 UNK, 2X/DAY
     Dates: start: 20050101

REACTIONS (4)
  - ANAPHYLACTIC REACTION [None]
  - FATIGUE [None]
  - SWOLLEN TONGUE [None]
  - DYSARTHRIA [None]
